FAERS Safety Report 15957152 (Version 1)
Quarter: 2019Q1

REPORT INFORMATION
  Report Type: Spontaneous
  Country: US (occurrence: US)
  Receive Date: 20190213
  Receipt Date: 20190213
  Transmission Date: 20190417
  Serious: Yes (Hospitalization)
  Sender: FDA-Public Use
  Company Number: None

PATIENT
  Age: 58 Year
  Sex: Male

DRUGS (16)
  1. DILTIAZEM. [Concomitant]
     Active Substance: DILTIAZEM
  2. TESTOSTERONE GEL [Concomitant]
     Active Substance: TESTOSTERONE
  3. TORSEMIDE. [Concomitant]
     Active Substance: TORSEMIDE
  4. HUMALOG [Concomitant]
     Active Substance: INSULIN LISPRO
  5. XARELTO [Concomitant]
     Active Substance: RIVAROXABAN
  6. DIGOX [Concomitant]
     Active Substance: DIGOXIN
  7. PRAMIPEXOLE. [Concomitant]
     Active Substance: PRAMIPEXOLE
  8. DOXAZOSIN [Concomitant]
     Active Substance: DOXAZOSIN\DOXAZOSIN MESYLATE
  9. EPLERENONE. [Concomitant]
     Active Substance: EPLERENONE
  10. TORSEMIDE. [Concomitant]
     Active Substance: TORSEMIDE
  11. TEKTURNA [Concomitant]
     Active Substance: ALISKIREN HEMIFUMARATE
  12. PROAIR HFA [Concomitant]
     Active Substance: ALBUTEROL SULFATE
  13. MESALAMINE. [Concomitant]
     Active Substance: MESALAMINE
  14. HUMIRA [Suspect]
     Active Substance: ADALIMUMAB
     Indication: CROHN^S DISEASE
     Dosage: ?          OTHER FREQUENCY:EVERY 2 WEEKS;?
     Route: 058
     Dates: start: 20181107
  15. ADVAIR HFA [Concomitant]
     Active Substance: FLUTICASONE PROPIONATE\SALMETEROL XINAFOATE
  16. VITAMIN D [Concomitant]
     Active Substance: CHOLECALCIFEROL

REACTIONS (2)
  - Unevaluable event [None]
  - Therapy cessation [None]

NARRATIVE: CASE EVENT DATE: 20190129
